FAERS Safety Report 15877657 (Version 2)
Quarter: 2019Q1

REPORT INFORMATION
  Report Type: Spontaneous
  Country: US (occurrence: US)
  Receive Date: 20190128
  Receipt Date: 20190301
  Transmission Date: 20190417
  Serious: Yes (Other)
  Sender: FDA-Public Use
  Company Number: US-009507513-1901USA008055

PATIENT
  Age: 21 Year
  Sex: Female
  Weight: 115.65 kg

DRUGS (3)
  1. NEXPLANON [Suspect]
     Active Substance: ETONOGESTREL
     Dosage: ROD, 68 MG, SAME INSERTION SITE
     Route: 059
     Dates: start: 201703
  2. NEXPLANON [Suspect]
     Active Substance: ETONOGESTREL
     Dosage: ROD, 68 MG, SAME INSERTION SITE
     Dates: start: 201405, end: 201703
  3. NEXPLANON [Suspect]
     Active Substance: ETONOGESTREL
     Indication: CONTRACEPTION
     Dosage: ROD, 68 MG,  INTO HER RIGHT (NON-DOMINANT) ARM
     Route: 059
     Dates: end: 201405

REACTIONS (10)
  - Fibromyalgia [Unknown]
  - Device dislocation [Recovered/Resolved]
  - Amenorrhoea [Not Recovered/Not Resolved]
  - Complication of device removal [Recovered/Resolved]
  - Complication associated with device [Recovered/Resolved]
  - Dizziness [Recovered/Resolved]
  - Affect lability [Recovered/Resolved]
  - Implant site scar [Not Recovered/Not Resolved]
  - Menstruation irregular [Not Recovered/Not Resolved]
  - Device deployment issue [Recovered/Resolved]

NARRATIVE: CASE EVENT DATE: 201405
